FAERS Safety Report 13463747 (Version 1)
Quarter: 2017Q2

REPORT INFORMATION
  Report Type: Spontaneous
  Country: US (occurrence: US)
  Receive Date: 20170420
  Receipt Date: 20170420
  Transmission Date: 20170830
  Serious: No
  Sender: FDA-Public Use
  Company Number: US-ROCHE-681512

PATIENT
  Age: 49 Year
  Sex: Female

DRUGS (5)
  1. ACCUTANE [Suspect]
     Active Substance: ISOTRETINOIN
     Indication: SEBORRHOEA
     Dosage: THERAPY TAKEN YEARS AGO
     Route: 065
  2. NORVASC [Concomitant]
     Active Substance: AMLODIPINE BESYLATE
     Route: 065
  3. COZAAR [Concomitant]
     Active Substance: LOSARTAN POTASSIUM
     Route: 065
  4. SYNTHROID [Concomitant]
     Active Substance: LEVOTHYROXINE SODIUM
     Route: 065
  5. CARDURA [Concomitant]
     Active Substance: DOXAZOSIN MESYLATE
     Route: 065

REACTIONS (4)
  - Myalgia [Unknown]
  - Visual impairment [Unknown]
  - Seborrhoea [Not Recovered/Not Resolved]
  - Rash [Unknown]
